FAERS Safety Report 18272953 (Version 1)
Quarter: 2020Q3

REPORT INFORMATION
  Report Type: Spontaneous
  Country: US (occurrence: US)
  Receive Date: 20200612
  Receipt Date: 20200612
  Transmission Date: 20201103
  Serious: Yes (Other)
  Sender: FDA-Public Use
  Company Number: None

PATIENT
  Age: 4 Decade
  Sex: Male

DRUGS (2)
  1. AZITHROMYCIN ANHYDROUS. [Suspect]
     Active Substance: AZITHROMYCIN ANHYDROUS
     Indication: COVID-19
     Dosage: ?          OTHER DOSE:500MG/250MG;?
     Dates: start: 2020
  2. ENOXAPARIN [Suspect]
     Active Substance: ENOXAPARIN
     Dosage: ?          OTHER DOSE:1MG/KG;?
     Route: 058

REACTIONS (3)
  - Oral candidiasis [None]
  - Off label use [None]
  - Oropharyngeal pain [None]
